FAERS Safety Report 16708080 (Version 1)
Quarter: 2019Q3

REPORT INFORMATION
  Report Type: Spontaneous
  Country: US (occurrence: US)
  Receive Date: 20190815
  Receipt Date: 20190815
  Transmission Date: 20191004
  Serious: No
  Sender: FDA-Public Use
  Company Number: US-009507513-1907USA011492

PATIENT
  Age: 36 Year
  Sex: Male

DRUGS (2)
  1. PRIMAXIN IV [Suspect]
     Active Substance: CILASTATIN SODIUM\IMIPENEM
     Indication: LYME DISEASE
     Dosage: 1 GRAM, Q8H
     Route: 042
     Dates: end: 199612
  2. CEFOTAXIME SODIUM [Concomitant]
     Active Substance: CEFOTAXIME SODIUM
     Indication: LYME DISEASE
     Dosage: 2 GRAM, Q8H
     Route: 042
     Dates: end: 199702

REACTIONS (1)
  - Product use in unapproved indication [Unknown]
